FAERS Safety Report 10642172 (Version 1)
Quarter: 2014Q4

REPORT INFORMATION
  Report Type: Spontaneous
  Country: FR (occurrence: FR)
  Receive Date: 20141210
  Receipt Date: 20141210
  Transmission Date: 20150529
  Serious: Yes (Hospitalization)
  Sender: FDA-Public Use
  Company Number: FR-AMGEN-FRASP2014095025

PATIENT
  Age: 49 Year
  Sex: Female

DRUGS (18)
  1. DEXAMETHASONE. [Suspect]
     Active Substance: DEXAMETHASONE
     Dosage: 40 MG, UNK
     Route: 048
     Dates: start: 20031105
  2. CISPLATIN. [Suspect]
     Active Substance: CISPLATIN
     Dosage: 150 MG, UNK
     Route: 042
     Dates: start: 20031015
  3. CISPLATIN. [Suspect]
     Active Substance: CISPLATIN
     Dosage: 150 MG, UNK
     Route: 042
     Dates: start: 20031105
  4. CYTARABINE. [Suspect]
     Active Substance: CYTARABINE
     Dosage: 6000 MG, UNK
     Route: 065
     Dates: start: 20031015
  5. CYTARABINE. [Suspect]
     Active Substance: CYTARABINE
     Dosage: 6000 MG, UNK
     Route: 065
     Dates: start: 20031105
  6. ETOPOSIDE. [Concomitant]
     Active Substance: ETOPOSIDE
     Dosage: 1280 MG, UNK
     Dates: start: 20031212
  7. FILGRASTIM [Suspect]
     Active Substance: FILGRASTIM
     Indication: DIFFUSE LARGE B-CELL LYMPHOMA
     Dosage: CYCLE 1: 6 DAYS, CYCLE 2: 7 DAYS AND CYCLE 3 (263 MCG/DAY)
     Route: 058
  8. RITUXIMAB [Suspect]
     Active Substance: RITUXIMAB
     Dosage: 600 MG, UNK
     Route: 042
  9. MELPHALAN [Concomitant]
     Active Substance: MELPHALAN
     Dosage: 220 MG, UNK
     Dates: start: 20031212
  10. RITUXIMAB [Suspect]
     Active Substance: RITUXIMAB
     Dosage: 600 MG, UNK
     Route: 042
     Dates: start: 20031015
  11. CISPLATIN. [Suspect]
     Active Substance: CISPLATIN
     Indication: DIFFUSE LARGE B-CELL LYMPHOMA
     Dosage: 150 MG, UNK
     Route: 042
     Dates: start: 20030925
  12. RITUXIMAB [Suspect]
     Active Substance: RITUXIMAB
     Indication: DIFFUSE LARGE B-CELL LYMPHOMA
     Dosage: 600 MG, UNK
     Route: 042
     Dates: start: 20030925
  13. RITUXIMAB [Suspect]
     Active Substance: RITUXIMAB
     Dosage: 600 MG, UNK
     Route: 042
     Dates: start: 20031015
  14. DEXAMETHASONE. [Suspect]
     Active Substance: DEXAMETHASONE
     Indication: DIFFUSE LARGE B-CELL LYMPHOMA
     Dosage: 40 MG, UNK
     Route: 048
     Dates: start: 20030925
  15. BICNU [Concomitant]
     Active Substance: CARMUSTINE
     Dosage: 475 MG, UNK
     Dates: start: 20031212
  16. DEXAMETHASONE. [Suspect]
     Active Substance: DEXAMETHASONE
     Dosage: 40 MG, UNK
     Route: 048
     Dates: start: 20031015
  17. CYTARABINE. [Suspect]
     Active Substance: CYTARABINE
     Dosage: 2560 MG, UNK
     Route: 065
     Dates: start: 20031212
  18. CYTARABINE. [Suspect]
     Active Substance: CYTARABINE
     Indication: DIFFUSE LARGE B-CELL LYMPHOMA
     Dosage: 6000 MG, UNK
     Route: 065
     Dates: start: 20030925

REACTIONS (2)
  - Pseudomonas bronchitis [Recovered/Resolved]
  - Lung disorder [Recovered/Resolved]

NARRATIVE: CASE EVENT DATE: 20040819
